FAERS Safety Report 6571654-9 (Version None)
Quarter: 2010Q1

REPORT INFORMATION
  Report Type: 
  Country: None (occurrence: None)
  Receive Date: 20100205
  Receipt Date: 20100126
  Transmission Date: 20100710
  Serious: Yes (Other)
  Sender: FDA-Public Use
  Company Number: ES-JNJFOC-20100110998

PATIENT
  Age: 20 Year
  Sex: Male

DRUGS (3)
  1. REMICADE [Suspect]
     Indication: CROHN'S DISEASE
     Route: 042
     Dates: start: 20091021
  2. REMICADE [Suspect]
     Route: 042
     Dates: start: 20091021
  3. REMICADE [Suspect]
     Route: 042
     Dates: start: 20091021

REACTIONS (3)
  - B-CELL LYMPHOMA [None]
  - ENTEROVESICAL FISTULA [None]
  - PERITONITIS [None]
